FAERS Safety Report 5643558-7 (Version None)
Quarter: 2008Q1

REPORT INFORMATION
  Report Type: 
  Country: None (occurrence: None)
  Receive Date: 20080228
  Receipt Date: 20080222
  Transmission Date: 20080703
  Serious: Yes (Other)
  Sender: FDA-Public Use
  Company Number: DE-PFIZER INC-2008011732

PATIENT
  Age: 63 Year
  Sex: Male

DRUGS (5)
  1. SORTIS [Suspect]
     Indication: HYPERCHOLESTEROLAEMIA
     Dosage: DAILY DOSE:20MG
     Route: 048
  2. SORTIS [Suspect]
     Indication: CARDIAC DISORDER
  3. MOLSIDOMINE [Concomitant]
  4. METOHEXAL [Concomitant]
  5. ASPIRIN [Concomitant]
     Route: 048

REACTIONS (2)
  - DIVERTICULUM [None]
  - LARGE INTESTINAL HAEMORRHAGE [None]
